FAERS Safety Report 19464188 (Version 1)
Quarter: 2021Q2

REPORT INFORMATION
  Report Type: Spontaneous
  Country: PT (occurrence: PT)
  Receive Date: 20210627
  Receipt Date: 20210627
  Transmission Date: 20210717
  Serious: Yes (Other)
  Sender: FDA-Public Use
  Company Number: PT-AUROBINDO-AUR-APL-2021-026162

PATIENT
  Age: 64 Year
  Sex: Female
  Weight: 93 kg

DRUGS (11)
  1. FUROSEMIDE. [Suspect]
     Active Substance: FUROSEMIDE
     Indication: CHRONIC KIDNEY DISEASE
     Dosage: 80 MILLIGRAM, ONCE A DAY
     Route: 065
  2. SPIRONOLACTONE. [Suspect]
     Active Substance: SPIRONOLACTONE
     Indication: CHRONIC KIDNEY DISEASE
     Dosage: 25 MILLIGRAM
     Route: 065
  3. SPIRONOLACTONE. [Suspect]
     Active Substance: SPIRONOLACTONE
     Indication: CARDIAC FAILURE
     Dosage: 50 MILLIGRAM, ONCE A DAY
     Route: 065
  4. FUROSEMIDE. [Suspect]
     Active Substance: FUROSEMIDE
     Indication: CARDIAC FAILURE
  5. NITROGLYCERINE [Concomitant]
     Active Substance: NITROGLYCERIN
     Indication: PRODUCT USED FOR UNKNOWN INDICATION
     Dosage: UNK
     Route: 062
  6. CARVEDILOL. [Suspect]
     Active Substance: CARVEDILOL
     Indication: CHRONIC KIDNEY DISEASE
     Dosage: 50 MILLIGRAM, ONCE A DAY
     Route: 065
  7. SACUBITRIL;VALSARTAN [Suspect]
     Active Substance: SACUBITRIL\VALSARTAN
     Indication: CARDIAC FAILURE
     Dosage: UNK UNK, ONCE A DAY (97/103 BID)
     Route: 065
  8. PATIROMER [Concomitant]
     Active Substance: PATIROMER
     Indication: CARDIAC FAILURE
     Dosage: 8.4 GRAM, ONCE A DAY
     Route: 065
  9. PATIROMER [Concomitant]
     Active Substance: PATIROMER
     Indication: CHRONIC KIDNEY DISEASE
     Dosage: 16.8 GRAM, ONCE A DAY
     Route: 065
  10. CARVEDILOL. [Suspect]
     Active Substance: CARVEDILOL
     Indication: CARDIAC FAILURE
  11. SACUBITRIL;VALSARTAN [Suspect]
     Active Substance: SACUBITRIL\VALSARTAN
     Indication: CHRONIC KIDNEY DISEASE

REACTIONS (1)
  - Hyperkalaemia [Unknown]
